FAERS Safety Report 4330483-7 (Version None)
Quarter: 2004Q1

REPORT INFORMATION
  Report Type: 
  Country: None (occurrence: None)
  Receive Date: 20040329
  Receipt Date: 20040316
  Transmission Date: 20041129
  Serious: Yes (Other)
  Sender: FDA-Public Use
  Company Number: GB-JNJFOC-20040303660

PATIENT
  Age: 40 Year
  Sex: Male

DRUGS (11)
  1. REMICADE [Suspect]
     Indication: RHEUMATOID ARTHRITIS
     Dosage: 305 MG, INTRAVENOUS
     Route: 042
     Dates: start: 20021126
  2. METHOTREXATE [Concomitant]
  3. SULFASALAZINE [Concomitant]
  4. PREDNISOLONE [Concomitant]
  5. ACETAMINOPHEN [Concomitant]
  6. CODEINE PHOSPHATE (CODEINE PHOSPHATE) [Concomitant]
  7. FOLIC ACID [Concomitant]
  8. DICLOFENAC SODIUM [Concomitant]
  9. INHALER (ANTI-ASTHMATICS) [Concomitant]
  10. AMLODIPINE [Concomitant]
  11. FOSINOPRIL SODIUM [Concomitant]

REACTIONS (1)
  - BASAL CELL CARCINOMA [None]
